FAERS Safety Report 13580548 (Version 2)
Quarter: 2017Q2

REPORT INFORMATION
  Report Type: Spontaneous
  Country: JP (occurrence: JP)
  Receive Date: 20170525
  Receipt Date: 20170526
  Transmission Date: 20170830
  Serious: Yes (Other)
  Sender: FDA-Public Use
  Company Number: JP-009507513-1705JPN001360J

PATIENT
  Age: 40 Year
  Sex: Female

DRUGS (1)
  1. BELSOMRA [Suspect]
     Active Substance: SUVOREXANT
     Indication: SCHIZOPHRENIA
     Dosage: 20 MG, QD
     Route: 048

REACTIONS (3)
  - Sleep attacks [Not Recovered/Not Resolved]
  - Narcolepsy [Not Recovered/Not Resolved]
  - Atonic seizures [Not Recovered/Not Resolved]
